FAERS Safety Report 21105092 (Version 1)
Quarter: 2022Q3

REPORT INFORMATION
  Report Type: Spontaneous
  Country: US (occurrence: None)
  Receive Date: 20220719
  Receipt Date: 20220719
  Transmission Date: 20221027
  Serious: No
  Sender: FDA-Public Use
  Company Number: None

PATIENT
  Age: 43 Year
  Sex: Female
  Weight: 67.5 kg

DRUGS (3)
  1. SUCRAID [Suspect]
     Active Substance: SACROSIDASE
     Indication: Sucrase-isomaltase deficiency
     Dosage: OTHER FREQUENCY : EVERY MEAL/SNACK;?
     Route: 048
     Dates: start: 20220714
  2. TIROSINT [Concomitant]
     Active Substance: LEVOTHYROXINE SODIUM
  3. Chi Tonic mixture [Concomitant]

REACTIONS (3)
  - Restless legs syndrome [None]
  - Condition aggravated [None]
  - Sleep disorder [None]

NARRATIVE: CASE EVENT DATE: 20220714
